FAERS Safety Report 26198595 (Version 1)
Quarter: 2025Q4

REPORT INFORMATION
  Report Type: Spontaneous
  Country: EU (occurrence: EU)
  Receive Date: 20251224
  Receipt Date: 20251224
  Transmission Date: 20260118
  Serious: Yes (Other)
  Sender: ABBVIE
  Company Number: EU-ABBVIE-6493351

PATIENT
  Age: 42 Year
  Sex: Female

DRUGS (3)
  1. HUMIRA [Suspect]
     Active Substance: ADALIMUMAB
     Indication: Product used for unknown indication
     Dosage: FORM STRENGTH: 40 MILLIGRAM
     Route: 058
     Dates: start: 2014
  2. HUMIRA [Suspect]
     Active Substance: ADALIMUMAB
     Dosage: FORM STRENGTH: 40 MILLIGRAM
     Route: 058
     Dates: start: 2017, end: 2020
  3. RINVOQ [Suspect]
     Active Substance: UPADACITINIB
     Indication: Arthritis
     Route: 048
     Dates: start: 202401

REACTIONS (13)
  - Haemorrhagic vasculitis [Unknown]
  - Sacroiliitis [Unknown]
  - Rash [Recovered/Resolved]
  - Lip swelling [Unknown]
  - Uveitis [Recovered/Resolved]
  - Hypermobility syndrome [Unknown]
  - Ankylosing spondylitis [Unknown]
  - Arthralgia [Recovered/Resolved]
  - Peripheral swelling [Recovered/Resolved]
  - Sacral pain [Recovered/Resolved]
  - Drug hypersensitivity [Unknown]
  - Arthritis [Unknown]
  - Pain in extremity [Recovered/Resolved]

NARRATIVE: CASE EVENT DATE: 20200101
